FAERS Safety Report 20182586 (Version 5)
Quarter: 2022Q1

REPORT INFORMATION
  Report Type: Report from Study
  Country: GB (occurrence: GB)
  Receive Date: 20211214
  Receipt Date: 20220304
  Transmission Date: 20220423
  Serious: Yes (Hospitalization, Other)
  Sender: FDA-Public Use
  Company Number: GB-NOVARTISPH-NVSC2021GB250985

PATIENT
  Sex: Female

DRUGS (1)
  1. RIBOCICLIB [Suspect]
     Active Substance: RIBOCICLIB
     Indication: Breast cancer
     Dosage: UNK, QD (NO CHANGE TO DOSE)
     Route: 048
     Dates: start: 20210401

REACTIONS (7)
  - Neutrophil count decreased [Recovering/Resolving]
  - Neutropenia [Unknown]
  - Incorrect product administration duration [Unknown]
  - COVID-19 [Recovering/Resolving]
  - Fatigue [Unknown]
  - Constipation [Recovering/Resolving]
  - White blood cell count decreased [Unknown]
